FAERS Safety Report 21147683 (Version 1)
Quarter: 2022Q3

REPORT INFORMATION
  Report Type: Spontaneous
  Country: US (occurrence: None)
  Receive Date: 20220728
  Receipt Date: 20220728
  Transmission Date: 20221026
  Serious: Yes (Other)
  Sender: FDA-Public Use
  Company Number: None

PATIENT
  Age: 79 Year
  Sex: Female
  Weight: 55.8 kg

DRUGS (2)
  1. INJECTAFER [Suspect]
     Active Substance: FERRIC CARBOXYMALTOSE
     Indication: Anaemia
     Dosage: OTHER FREQUENCY : WEEKLY X 2 DOSES;?
     Route: 041
     Dates: start: 20220715, end: 20220728
  2. SODIUM CHLORIDE [Concomitant]
     Active Substance: SODIUM CHLORIDE
     Dates: start: 20220728, end: 20220728

REACTIONS (5)
  - Nausea [None]
  - Abdominal pain upper [None]
  - Dyspnoea [None]
  - Infusion related reaction [None]
  - Incorrect dose administered [None]

NARRATIVE: CASE EVENT DATE: 20220728
